FAERS Safety Report 16123681 (Version 1)
Quarter: 2019Q1

REPORT INFORMATION
  Report Type: Spontaneous
  Country: US (occurrence: US)
  Receive Date: 20190327
  Receipt Date: 20190327
  Transmission Date: 20190418
  Serious: No
  Sender: FDA-Public Use
  Company Number: US-PFIZER INC-2019131877

PATIENT

DRUGS (1)
  1. EUCRISA [Suspect]
     Active Substance: CRISABOROLE
     Indication: RASH MACULAR
     Dosage: UNK

REACTIONS (5)
  - Off label use [Unknown]
  - Application site haemorrhage [Unknown]
  - Application site swelling [Unknown]
  - Application site inflammation [Unknown]
  - Application site erythema [Unknown]
